FAERS Safety Report 9617489 (Version 1)
Quarter: 2013Q4

REPORT INFORMATION
  Report Type: Spontaneous
  Country: US (occurrence: US)
  Receive Date: 20131011
  Receipt Date: 20131011
  Transmission Date: 20140711
  Serious: Yes (Hospitalization, Other)
  Sender: FDA-Public Use
  Company Number: US-GLAXOSMITHKLINE-A1040495A

PATIENT
  Age: 47 Year
  Sex: Female

DRUGS (3)
  1. TYKERB [Suspect]
     Indication: NEOPLASM MALIGNANT
     Dosage: 250MG UNKNOWN
     Dates: start: 20080508
  2. TOPOTECAN [Suspect]
     Indication: BRAIN NEOPLASM MALIGNANT
     Route: 037
     Dates: start: 20130917, end: 20130927
  3. TRASTUZUMAB [Suspect]
     Indication: BRAIN NEOPLASM MALIGNANT
     Route: 037
     Dates: start: 20130917, end: 20130927

REACTIONS (5)
  - Dysarthria [Recovering/Resolving]
  - Neoplasm [Recovering/Resolving]
  - Disorientation [Recovering/Resolving]
  - Hypophagia [Recovering/Resolving]
  - Ill-defined disorder [Recovering/Resolving]
